FAERS Safety Report 8032078-0 (Version None)
Quarter: 2012Q1

REPORT INFORMATION
  Report Type: 
  Country: None (occurrence: None)
  Receive Date: 20120109
  Receipt Date: 20110125
  Transmission Date: 20120608
  Serious: No
  Sender: FDA-Public Use
  Company Number: US-ABBOTT-11P-163-0701178-00

PATIENT
  Sex: Female
  Weight: 53.572 kg

DRUGS (1)
  1. VICODIN [Suspect]
     Indication: PAIN
     Dates: end: 20070101

REACTIONS (2)
  - DRUG DEPENDENCE [None]
  - LIVER DISORDER [None]
